FAERS Safety Report 7605181-4 (Version None)
Quarter: 2011Q3

REPORT INFORMATION
  Report Type: 
  Country: None (occurrence: None)
  Receive Date: 20110705
  Receipt Date: 20110617
  Transmission Date: 20111222
  Serious: Yes (Disabling)
  Sender: FDA-Public Use
  Company Number: 2011MA006945

PATIENT
  Age: 80 Year
  Sex: Male

DRUGS (2)
  1. ACE INHIBITOR NOS [Concomitant]
  2. SPIRONOLACTONE [Suspect]
     Indication: PRODUCT USED FOR UNKNOWN INDICATION
     Dosage: 100 MG, QD

REACTIONS (9)
  - BRADYCARDIA [None]
  - HYPERKALAEMIA [None]
  - ABASIA [None]
  - ALTERED STATE OF CONSCIOUSNESS [None]
  - DEHYDRATION [None]
  - ASTHENIA [None]
  - RENAL FAILURE CHRONIC [None]
  - BLOOD POTASSIUM INCREASED [None]
  - HYPOTENSION [None]
